FAERS Safety Report 6134721-X (Version None)
Quarter: 2009Q1

REPORT INFORMATION
  Report Type: 
  Country: None (occurrence: None)
  Receive Date: 20090327
  Receipt Date: 20090319
  Transmission Date: 20090719
  Serious: Yes (Hospitalization)
  Sender: FDA-Public Use
  Company Number: US-KINGPHARMUSA00001-K200900323

PATIENT
  Age: 66 Year
  Sex: Female

DRUGS (10)
  1. THROMBIN NOS [Suspect]
     Indication: HAEMOSTASIS
     Dosage: UNK
     Route: 061
     Dates: start: 20080901, end: 20080901
  2. FELODIPINE [Concomitant]
     Dosage: UNK
  3. CLONIDINE [Concomitant]
     Dosage: UNK
  4. PRILOSEC [Concomitant]
     Dosage: UNK
  5. RENAGEL                            /01459901/ [Concomitant]
     Dosage: UNK
  6. LISINOPRIL [Concomitant]
     Dosage: UNK
  7. METOPROLOL [Concomitant]
     Dosage: UNK
  8. REGLAN [Concomitant]
     Dosage: UNK
  9. COLACE [Concomitant]
     Dosage: UNK
  10. MULTIVITAMIN                       /00831701/ [Concomitant]
     Dosage: UNK

REACTIONS (2)
  - FACTOR V DEFICIENCY [None]
  - GASTROINTESTINAL HAEMORRHAGE [None]
